FAERS Safety Report 20833560 (Version 1)
Quarter: 2022Q2

REPORT INFORMATION
  Report Type: Report from Study
  Country: US (occurrence: US)
  Receive Date: 20220516
  Receipt Date: 20220516
  Transmission Date: 20220720
  Serious: Yes (Hospitalization)
  Sender: FDA-Public Use
  Company Number: US-TEVA-2022-US-2038411

PATIENT
  Age: 12 Year
  Sex: Male
  Weight: 77.06 kg

DRUGS (26)
  1. VINCRISTINE [Suspect]
     Active Substance: VINCRISTINE
     Indication: Acute lymphocytic leukaemia
     Dosage: 2 MG, ONCE
     Route: 042
     Dates: start: 20181029, end: 20181029
  2. VINCRISTINE [Suspect]
     Active Substance: VINCRISTINE
     Dosage: 2 MG, ONCE
     Route: 042
     Dates: start: 20190128, end: 20190128
  3. METHOTREXATE [Suspect]
     Active Substance: METHOTREXATE
     Indication: Acute lymphocytic leukaemia
     Dosage: 8600 MG, ONCE
     Route: 042
     Dates: start: 20181123, end: 20181123
  4. METHOTREXATE [Suspect]
     Active Substance: METHOTREXATE
     Indication: Acute lymphocytic leukaemia
     Dosage: 15 MG, ONCE
     Route: 037
     Dates: start: 20190419, end: 20190419
  5. METHOTREXATE [Suspect]
     Active Substance: METHOTREXATE
     Dosage: 15 MG, ONCE
     Route: 037
     Dates: start: 20190429, end: 20190429
  6. LEUCOVORIN [Suspect]
     Active Substance: LEUCOVORIN
     Dosage: 57.2 MILLIGRAM DAILY;
     Route: 042
     Dates: start: 20190130, end: 20190131
  7. THIOGUANINE [Suspect]
     Active Substance: THIOGUANINE
     Dosage: 120 MILLIGRAM DAILY;
     Route: 048
     Dates: start: 20190419, end: 20190426
  8. THIOGUANINE [Suspect]
     Active Substance: THIOGUANINE
     Dosage: 120 MILLIGRAM DAILY;
     Route: 048
     Dates: start: 20190427
  9. CYCLOPHOSPHAMIDE [Suspect]
     Active Substance: CYCLOPHOSPHAMIDE
     Dosage: 1840 MG, ONCE
     Route: 042
     Dates: start: 20181015, end: 20181015
  10. CYCLOPHOSPHAMIDE [Suspect]
     Active Substance: CYCLOPHOSPHAMIDE
     Dosage: 2080 MG, ONCE
     Route: 042
     Dates: start: 20190419
  11. MERCAPTOPURINE [Suspect]
     Active Substance: MERCAPTOPURINE
     Dosage: 100 MILLIGRAM DAILY; MONDAY - THURSDAY
     Route: 048
     Dates: start: 20181015
  12. MERCAPTOPURINE [Suspect]
     Active Substance: MERCAPTOPURINE
     Dosage: FRI - SUN
     Route: 048
     Dates: end: 20181028
  13. MERCAPTOPURINE [Suspect]
     Active Substance: MERCAPTOPURINE
     Dosage: 50 MILLIGRAM DAILY;
     Route: 048
     Dates: start: 20190128, end: 20190129
  14. RUXOLITINIB [Suspect]
     Active Substance: RUXOLITINIB
     Indication: Acute lymphocytic leukaemia
     Dosage: 180 MILLIGRAM DAILY;
     Route: 048
     Dates: start: 20181015, end: 20181028
  15. RUXOLITINIB [Suspect]
     Active Substance: RUXOLITINIB
     Dosage: 190 MILLIGRAM DAILY;
     Route: 048
     Dates: start: 20190110, end: 20190123
  16. RUXOLITINIB [Suspect]
     Active Substance: RUXOLITINIB
     Dosage: 200 MILLIGRAM DAILY;
     Route: 048
     Dates: start: 20190419, end: 20190426
  17. RUXOLITINIB [Suspect]
     Active Substance: RUXOLITINIB
     Dosage: 200 MILLIGRAM DAILY;
     Route: 048
     Dates: start: 20190427
  18. CYTARABINE [Suspect]
     Active Substance: CYTARABINE
     Indication: Acute lymphocytic leukaemia
     Dosage: 1.38 ML DAILY;
     Route: 058
     Dates: start: 20181022, end: 20181026
  19. CYTARABINE [Suspect]
     Active Substance: CYTARABINE
     Dosage: 156 MILLIGRAM DAILY;
     Route: 058
     Dates: start: 20190419
  20. CYTARABINE [Suspect]
     Active Substance: CYTARABINE
     Dosage: 156 MILLIGRAM DAILY;
     Route: 058
     Dates: start: 20190429
  21. DIPHENHYDRAMINE HYDROCHLORIDE\LIDOCAINE HYDROCHLORIDE\NYSTATIN [Concomitant]
     Active Substance: DIPHENHYDRAMINE HYDROCHLORIDE\LIDOCAINE HYDROCHLORIDE\NYSTATIN
     Dates: start: 20180822
  22. NEURONTIN [Concomitant]
     Active Substance: GABAPENTIN
     Dates: start: 20181001
  23. ROXICODONE [Concomitant]
     Active Substance: OXYCODONE HYDROCHLORIDE
     Dates: start: 20180808
  24. BACTRIM [Concomitant]
     Active Substance: SULFAMETHOXAZOLE\TRIMETHOPRIM
     Dates: start: 20180810
  25. ZOFRAN [Concomitant]
     Active Substance: ONDANSETRON HYDROCHLORIDE
     Dates: start: 20180809
  26. ROCEPHIN [Concomitant]
     Active Substance: CEFTRIAXONE SODIUM
     Dates: start: 20190423, end: 20190425

REACTIONS (5)
  - Febrile neutropenia [Recovered/Resolved]
  - Thrombocytopenia [Recovered/Resolved]
  - Venoocclusive liver disease [Recovered/Resolved]
  - Parainfluenzae virus infection [Recovered/Resolved]
  - Febrile neutropenia [Recovered/Resolved]

NARRATIVE: CASE EVENT DATE: 20190203
